FAERS Safety Report 14605362 (Version 1)
Quarter: 2018Q1

REPORT INFORMATION
  Report Type: Spontaneous
  Country: GB (occurrence: GB)
  Receive Date: 20180306
  Receipt Date: 20180306
  Transmission Date: 20180509
  Serious: Yes (Hospitalization, Disabling, Other)
  Sender: FDA-Public Use
  Company Number: GB-TEVA-2018-GB-864810

PATIENT
  Age: 14 Year
  Sex: Female
  Weight: 66.22 kg

DRUGS (2)
  1. DIAZEPAM. [Suspect]
     Active Substance: DIAZEPAM
     Indication: BACK PAIN
     Dosage: 4 - 16MG PER DAY IN DIVIDED DOSES. 2MG/5ML
     Route: 048
     Dates: start: 20171115, end: 20171223
  2. CODEINE [Concomitant]
     Active Substance: CODEINE
     Dosage: 1-2.

REACTIONS (3)
  - Seizure [Recovered/Resolved with Sequelae]
  - Amnesia [Unknown]
  - Hallucination [Unknown]

NARRATIVE: CASE EVENT DATE: 20171117
